FAERS Safety Report 17952908 (Version 1)
Quarter: 2020Q2

REPORT INFORMATION
  Report Type: Spontaneous
  Country: LV (occurrence: LV)
  Receive Date: 20200627
  Receipt Date: 20200627
  Transmission Date: 20200714
  Serious: Yes (Other)
  Sender: FDA-Public Use
  Company Number: LV-ACCORD-186961

PATIENT
  Age: 72 Year
  Sex: Male

DRUGS (1)
  1. SPIRONOLACTONE. [Suspect]
     Active Substance: SPIRONOLACTONE
     Indication: CARDIAC FAILURE CHRONIC
     Dosage: STRENGTH: 50 MG; 2 TABLETS TAKEN EVERY SECOND DAY.
     Route: 048
     Dates: start: 20200504, end: 20200612

REACTIONS (3)
  - Oedema [Unknown]
  - Dyspnoea [Unknown]
  - Therapeutic product effect decreased [Unknown]
